FAERS Safety Report 15455941 (Version 1)
Quarter: 2018Q4

REPORT INFORMATION
  Report Type: Spontaneous
  Country: IT (occurrence: IT)
  Receive Date: 20181002
  Receipt Date: 20181002
  Transmission Date: 20190204
  Serious: Yes (Hospitalization, Other)
  Sender: FDA-Public Use
  Company Number: IT-SA-2018SA269373

PATIENT
  Age: 95 Year
  Sex: Female

DRUGS (5)
  1. CANRENONE [Suspect]
     Active Substance: CANRENONE
     Indication: PRODUCT ADMINISTRATION ERROR
     Dosage: 25 MG, TOTAL
     Route: 048
     Dates: start: 20180916, end: 20180916
  2. METOPROLOL SALT NOT SPECIFIED [Suspect]
     Active Substance: METOPROLOL
     Indication: PRODUCT ADMINISTRATION ERROR
     Dosage: 50 MG, TOTAL
     Route: 048
     Dates: start: 20180916, end: 20180916
  3. ZOLPIDEM TARTRATE. [Suspect]
     Active Substance: ZOLPIDEM TARTRATE
     Indication: PRODUCT ADMINISTRATION ERROR
     Dosage: 1 DF, TOTAL
     Route: 048
     Dates: start: 20180916, end: 20180916
  4. DIAZEPAM. [Suspect]
     Active Substance: DIAZEPAM
     Indication: PRODUCT ADMINISTRATION ERROR
     Dosage: 10 MG, TOTAL
     Route: 048
     Dates: start: 20180916, end: 20180916
  5. TRILAFON [Suspect]
     Active Substance: PERPHENAZINE
     Indication: PRODUCT ADMINISTRATION ERROR
     Dosage: 4 MG, TOTAL
     Route: 048
     Dates: start: 20180916, end: 20180916

REACTIONS (3)
  - Medication error [Unknown]
  - Vomiting [Recovering/Resolving]
  - Bradycardia [Recovering/Resolving]

NARRATIVE: CASE EVENT DATE: 20180916
